FAERS Safety Report 8310411-X (Version None)
Quarter: 2012Q2

REPORT INFORMATION
  Report Type: 
  Country: None (occurrence: None)
  Receive Date: 20120425
  Receipt Date: 20120418
  Transmission Date: 20120825
  Serious: Yes (Hospitalization)
  Sender: FDA-Public Use
  Company Number: BE-BAYER-2012-028821

PATIENT
  Age: 79 Year
  Sex: Female

DRUGS (13)
  1. PANTOPRAZOLE [Concomitant]
     Dosage: 20 MG, UNK
  2. MONTELUKAST [Concomitant]
     Dosage: 10 MG, UNK
  3. ALPRAZOLAM [Concomitant]
     Dosage: 5 MG, UNK
  4. PARACETAMOL [Concomitant]
     Dosage: 2 G, UNK
  5. LERCANIDIPINE [Concomitant]
     Dosage: 20 MG, UNK
  6. CRESTOR [Concomitant]
     Dosage: 10 MG, UNK
  7. LEVOCETIRIZINE DIHYDROCHLORIDE [Concomitant]
     Dosage: 5 MG, UNK
  8. BISOPROLOL FUMARATE [Concomitant]
     Dosage: 5 MG, UNK
  9. PHYTOTHERAPY PRODUCT TO TREAT VENOUS INSUFFICIENCY [Concomitant]
  10. AVELOX [Suspect]
     Indication: LUNG INFECTION
     Dosage: 400 MG, QD
     Route: 048
     Dates: start: 20111007, end: 20111016
  11. PARACETAMOL [Concomitant]
     Dosage: 4 G, PER DAY
  12. OXYBUTYNIN [Concomitant]
     Dosage: 5 MG, QD
  13. TRAMADOL HCL [Concomitant]

REACTIONS (3)
  - NAUSEA [None]
  - CHOLANGITIS SCLEROSING [None]
  - ABDOMINAL PAIN UPPER [None]
